FAERS Safety Report 10817759 (Version 1)
Quarter: 2015Q1

REPORT INFORMATION
  Report Type: Spontaneous
  Country: US (occurrence: US)
  Receive Date: 20150218
  Receipt Date: 20150218
  Transmission Date: 20150721
  Serious: No
  Sender: FDA-Public Use
  Company Number: US-ASTRAZENECA-2014SE24515

PATIENT
  Age: 69 Year
  Sex: Female
  Weight: 70.3 kg

DRUGS (14)
  1. METFORMIN [Concomitant]
     Active Substance: METFORMIN HYDROCHLORIDE
  2. BYDUREON [Suspect]
     Active Substance: EXENATIDE
     Indication: TYPE 2 DIABETES MELLITUS
     Route: 058
  3. FLUOXETINE [Concomitant]
     Active Substance: FLUOXETINE\FLUOXETINE HYDROCHLORIDE
  4. FISH OIL [Concomitant]
     Active Substance: FISH OIL
  5. TUMS [Concomitant]
     Active Substance: CALCIUM CARBONATE
     Dosage: TABS
  6. MULTIVITAMIN [Concomitant]
     Active Substance: VITAMINS
  7. LEVOTHYROXINE [Concomitant]
     Active Substance: LEVOTHYROXINE
  8. FERROUS SULFATE [Concomitant]
     Active Substance: FERROUS SULFATE\FERROUS SULFATE, DRIED
  9. LIPITOR [Concomitant]
     Active Substance: ATORVASTATIN CALCIUM
  10. STARLIX [Concomitant]
     Active Substance: NATEGLINIDE
  11. ESTRADIOL. [Concomitant]
     Active Substance: ESTRADIOL
  12. OMEPRAZOLE. [Concomitant]
     Active Substance: OMEPRAZOLE
  13. ASPIRIN. [Concomitant]
     Active Substance: ASPIRIN
  14. VITAMIN C [Concomitant]
     Active Substance: ASCORBIC ACID

REACTIONS (6)
  - Irritable bowel syndrome [Unknown]
  - Weight increased [Unknown]
  - Injection site extravasation [None]
  - Drug ineffective [Unknown]
  - Hunger [Unknown]
  - Product packaging quantity issue [Unknown]
